FAERS Safety Report 15140262 (Version 1)
Quarter: 2018Q3

REPORT INFORMATION
  Report Type: Spontaneous
  Country: US (occurrence: US)
  Receive Date: 20180618
  Receipt Date: 20180618
  Transmission Date: 20181010
  Serious: Yes (Hospitalization)
  Sender: FDA-Public Use
  Company Number: None

PATIENT
  Sex: Female

DRUGS (22)
  1. ENTRESTO [Concomitant]
     Active Substance: SACUBITRIL\VALSARTAN
  2. A?HYDROCORT [Concomitant]
     Active Substance: HYDROCORTISONE SODIUM SUCCINATE
  3. ASPIRIN. [Concomitant]
     Active Substance: ASPIRIN
  4. SPIRONOLACT [Concomitant]
     Active Substance: SPIRONOLACTONE
  5. CELLCEPT [Suspect]
     Active Substance: MYCOPHENOLATE MOFETIL\MYCOPHENOLATE MOFETIL HYDROCHLORIDE
     Indication: TRANSPLANT
     Route: 048
     Dates: start: 20110907
  6. SYNTHROID [Concomitant]
     Active Substance: LEVOTHYROXINE SODIUM
  7. PLAVIX [Concomitant]
     Active Substance: CLOPIDOGREL BISULFATE
  8. SYNTHROID [Concomitant]
     Active Substance: LEVOTHYROXINE SODIUM
  9. FLUDROCORT [Concomitant]
  10. SERTRALINE [Concomitant]
     Active Substance: SERTRALINE HYDROCHLORIDE
  11. METOLAZONE. [Concomitant]
     Active Substance: METOLAZONE
  12. AMOX/K CLAV [Concomitant]
     Active Substance: AMOXICILLIN\CLAVULANATE POTASSIUM
  13. LASIX [Concomitant]
     Active Substance: FUROSEMIDE
  14. PLAQUENIL [Concomitant]
     Active Substance: HYDROXYCHLOROQUINE SULFATE
  15. ACYCLOVIR. [Concomitant]
     Active Substance: ACYCLOVIR
  16. FLUCANOZOLE [Concomitant]
  17. ISOSORB MONO [Concomitant]
     Active Substance: ISOSORBIDE MONONITRATE
  18. DEXMETHYLPH [Concomitant]
  19. DIGOX [Concomitant]
     Active Substance: DIGOXIN
  20. RANEXA [Concomitant]
     Active Substance: RANOLAZINE
  21. CORTEF [Concomitant]
     Active Substance: HYDROCORTISONE
  22. RANEXA [Concomitant]
     Active Substance: RANOLAZINE

REACTIONS (1)
  - Hospitalisation [None]
